FAERS Safety Report 20135745 (Version 2)
Quarter: 2022Q1

REPORT INFORMATION
  Report Type: Report from Study
  Country: CA (occurrence: CA)
  Receive Date: 20211201
  Receipt Date: 20220203
  Transmission Date: 20220423
  Serious: Yes (Hospitalization, Other)
  Sender: FDA-Public Use
  Company Number: CA-BEH-2021135267

PATIENT
  Age: 20 Year
  Sex: Female
  Weight: 47.619 kg

DRUGS (4)
  1. HAEGARDA [Suspect]
     Active Substance: HUMAN C1-ESTERASE INHIBITOR
     Indication: Hereditary angioedema
     Dosage: 3000 INTERNATIONAL UNIT, BIW
     Route: 058
     Dates: start: 20210826, end: 20211027
  2. HAEGARDA [Suspect]
     Active Substance: HUMAN C1-ESTERASE INHIBITOR
     Indication: Prophylaxis
  3. WELLBUTRIN [Concomitant]
     Active Substance: BUPROPION HYDROCHLORIDE
  4. METOPROLOL [Concomitant]
     Active Substance: METOPROLOL

REACTIONS (6)
  - Hereditary angioedema [Unknown]
  - Abdominal pain [Unknown]
  - Hereditary angioedema [Unknown]
  - Abdominal pain [Unknown]
  - Hereditary angioedema [Unknown]
  - Abdominal pain [Unknown]

NARRATIVE: CASE EVENT DATE: 20210801
